FAERS Safety Report 4501055-6 (Version None)
Quarter: 2004Q4

REPORT INFORMATION
  Report Type: 
  Country: None (occurrence: None)
  Receive Date: 20041115
  Receipt Date: 20040723
  Transmission Date: 20050328
  Serious: Yes (Hospitalization)
  Sender: FDA-Public Use
  Company Number: US-BRISTOL-MYERS SQUIBB COMPANY-12649737

PATIENT
  Age: 36 Year
  Sex: Female
  Weight: 87 kg

DRUGS (6)
  1. ABILIFY [Suspect]
     Indication: BIPOLAR DISORDER
     Dosage: 5 MG/DAY, INC TO 10 MG ON 12-DEC-03; INC TO 15MG ON 18-FEB-04. PATIENT DISC.+ RESTARTED
     Route: 048
     Dates: start: 20030923
  2. ABILIFY [Suspect]
     Indication: PSYCHOTIC DISORDER
     Dosage: 5 MG/DAY, INC TO 10 MG ON 12-DEC-03; INC TO 15MG ON 18-FEB-04. PATIENT DISC.+ RESTARTED
     Route: 048
     Dates: start: 20030923
  3. TRAZODONE HCL [Concomitant]
     Indication: INSOMNIA
     Dosage: 100-200 MG AT BEDTIME
     Route: 048
     Dates: start: 19980101
  4. PRENATAL VITAMIN [Concomitant]
  5. GLUCOPHAGE [Concomitant]
  6. CLONAZEPAM [Concomitant]

REACTIONS (2)
  - ABORTION SPONTANEOUS [None]
  - PREGNANCY [None]
